FAERS Safety Report 8926277 (Version 3)
Quarter: 2012Q4

REPORT INFORMATION
  Report Type: 
  Country: US (occurrence: US)
  Receive Date: 20121126
  Receipt Date: 20121210
  Transmission Date: 20130627
  Serious: Yes (Death, Hospitalization)
  Sender: FDA-Public Use
  Company Number: US-B.I. PHARMACEUTICALS,INC./RIDGEFIELD-2012-BI-00647BP

PATIENT
  Sex: Male

DRUGS (15)
  1. PRADAXA [Suspect]
     Indication: DEEP VEIN THROMBOSIS
     Dosage: 300 mg
     Route: 048
     Dates: start: 20120720
  2. ASPIRIN [Concomitant]
     Dosage: 81 mg
  3. DIGOXIN [Concomitant]
     Dosage: 0.125 mg
  4. CALCIUM WITH MAGNESIUM AND ZINC [Concomitant]
  5. SURFAK [Concomitant]
  6. PEPCID [Concomitant]
     Dosage: 20 mg
  7. FOSAMAX [Concomitant]
  8. LASIX [Concomitant]
  9. MOBIC [Concomitant]
  10. REMERON [Concomitant]
  11. MULTIVITAMINE WITH HERBS [Concomitant]
  12. PRO MOD PROTEIN POWDER [Concomitant]
  13. SPIRONOLACTONE [Concomitant]
     Dosage: 100 mg
  14. ULTRAM [Concomitant]
  15. AMBIEN [Concomitant]

REACTIONS (4)
  - Gastrointestinal haemorrhage [Fatal]
  - Pseudomonas infection [Unknown]
  - Cardiac failure congestive [Unknown]
  - Hypoproteinaemia [Unknown]
